FAERS Safety Report 9557426 (Version 6)
Quarter: 2015Q1

REPORT INFORMATION
  Report Type: Spontaneous
  Country: US (occurrence: US)
  Receive Date: 20130926
  Receipt Date: 20150219
  Transmission Date: 20150721
  Serious: Yes (Hospitalization, Other)
  Sender: FDA-Public Use
  Company Number: US-MERCK-1309USA012828

PATIENT
  Sex: Male
  Weight: 80.27 kg

DRUGS (1)
  1. JANUVIA [Suspect]
     Active Substance: SITAGLIPTIN PHOSPHATE
     Indication: TYPE 2 DIABETES MELLITUS
     Dosage: 100 MG, QD
     Route: 048
     Dates: start: 20110505, end: 201203

REACTIONS (34)
  - Cough [Recovered/Resolved]
  - Constipation [Unknown]
  - Metastatic neoplasm [Unknown]
  - Sleep apnoea syndrome [Unknown]
  - Musculoskeletal discomfort [Unknown]
  - Disease progression [Unknown]
  - Pancreatectomy [Unknown]
  - Pancreatitis acute [Unknown]
  - Dyslipidaemia [Unknown]
  - Benign prostatic hyperplasia [Unknown]
  - Vision blurred [Unknown]
  - Electrocardiogram abnormal [Unknown]
  - Nausea [Unknown]
  - Ductal adenocarcinoma of pancreas [Unknown]
  - Benign hepatic neoplasm [Unknown]
  - Helicobacter infection [Not Recovered/Not Resolved]
  - Treatment noncompliance [Unknown]
  - Gastrointestinal motility disorder [Unknown]
  - Iron deficiency anaemia [Unknown]
  - Splenectomy [Unknown]
  - Pancreatic carcinoma recurrent [Unknown]
  - Gallbladder polyp [Unknown]
  - Rhinitis perennial [Unknown]
  - Viral upper respiratory tract infection [Recovered/Resolved]
  - Mucosal dryness [Unknown]
  - Diverticulum intestinal [Unknown]
  - Ureteric stenosis [Unknown]
  - Chest discomfort [Unknown]
  - Abdominal pain [Unknown]
  - Insulin-requiring type 2 diabetes mellitus [Unknown]
  - Device occlusion [Unknown]
  - Chronic gastritis [Not Recovered/Not Resolved]
  - Erectile dysfunction [Unknown]
  - Arthralgia [Unknown]

NARRATIVE: CASE EVENT DATE: 20120109
